FAERS Safety Report 4362175-2 (Version None)
Quarter: 2004Q2

REPORT INFORMATION
  Report Type: 
  Country: None (occurrence: None)
  Receive Date: 20040520
  Receipt Date: 20040520
  Transmission Date: 20050107
  Serious: Yes (Other)
  Sender: FDA-Public Use
  Company Number: None

PATIENT
  Age: 33 Year
  Sex: Female

DRUGS (1)
  1. WATSON LOW OGESTREL TABLETS(GENERIC FOR LO-OVRAL) [Suspect]

REACTIONS (4)
  - ANXIETY [None]
  - HEADACHE [None]
  - PHARMACEUTICAL PRODUCT COMPLAINT [None]
  - VAGINAL DISCHARGE [None]
